FAERS Safety Report 4384395-3 (Version None)
Quarter: 2004Q2

REPORT INFORMATION
  Report Type: 
  Country: None (occurrence: None)
  Receive Date: 20040621
  Receipt Date: 20040617
  Transmission Date: 20050107
  Serious: Yes (Hospitalization, Disabling)
  Sender: FDA-Public Use
  Company Number: UKP04000230

PATIENT
  Age: 84 Year
  Sex: Male

DRUGS (4)
  1. ASACOL [Suspect]
     Indication: COLITIS ULCERATIVE
     Dosage: 800 MG, 3 /DAY, ORAL
     Route: 048
     Dates: end: 20040601
  2. FLOMAX MR ^YAMANOUCHTI^ (TAMSULOSIN HYDROCHLORIDE) [Concomitant]
  3. LISINOPRIL [Concomitant]
  4. CLIMEPIRIDE (GLIMEPIRIDE) [Concomitant]

REACTIONS (1)
  - PULMONARY FIBROSIS [None]
